FAERS Safety Report 9235255 (Version 1)
Quarter: 2013Q2

REPORT INFORMATION
  Report Type: Spontaneous
  Country: BE (occurrence: BE)
  Receive Date: 20130417
  Receipt Date: 20130417
  Transmission Date: 20140414
  Serious: Yes (Other)
  Sender: FDA-Public Use
  Company Number: BE-PFIZER INC-2013040104

PATIENT
  Age: 50 Year
  Sex: Female

DRUGS (1)
  1. CYTARABINE [Suspect]
     Dosage: UNK
     Route: 042

REACTIONS (1)
  - Device related infection [Unknown]
